FAERS Safety Report 6504420-0 (Version None)
Quarter: 2009Q4

REPORT INFORMATION
  Report Type: 
  Country: None (occurrence: None)
  Receive Date: 20091217
  Receipt Date: 20091207
  Transmission Date: 20100525
  Serious: Yes (Hospitalization)
  Sender: FDA-Public Use
  Company Number: CA-ABBOTT-09P-028-0613007-00

PATIENT
  Sex: Female
  Weight: 65.83 kg

DRUGS (14)
  1. HUMIRA [Suspect]
     Indication: CHOROIDITIS
     Route: 058
     Dates: start: 20060609
  2. PREDNISONE [Concomitant]
     Indication: DRUG USE FOR UNKNOWN INDICATION
  3. CLONAZEPAM [Concomitant]
     Indication: DRUG USE FOR UNKNOWN INDICATION
  4. ESTRACE [Concomitant]
     Indication: DRUG USE FOR UNKNOWN INDICATION
  5. PROGESTERONE [Concomitant]
     Indication: DRUG USE FOR UNKNOWN INDICATION
  6. NORTRIPTYLINE [Concomitant]
     Indication: DRUG USE FOR UNKNOWN INDICATION
     Dosage: 30-40 MG QD
  7. LEVOTHYROXINE SODIUM [Concomitant]
     Indication: DRUG USE FOR UNKNOWN INDICATION
  8. DEXEDRINE [Concomitant]
     Indication: DRUG USE FOR UNKNOWN INDICATION
  9. MORPHINE [Concomitant]
     Indication: DRUG USE FOR UNKNOWN INDICATION
     Dosage: 5-10 MG PRN
  10. CALCIUM [Concomitant]
     Indication: DRUG USE FOR UNKNOWN INDICATION
  11. ZOFRAN [Concomitant]
     Indication: NAUSEA
     Dosage: PRN
  12. ZOFRAN [Concomitant]
     Indication: MIGRAINE
  13. ZOFRAN [Concomitant]
     Indication: CRANIAL NERVE DISORDER
  14. GABAPENTIN [Concomitant]
     Indication: DRUG USE FOR UNKNOWN INDICATION

REACTIONS (1)
  - DRUG WITHDRAWAL MAINTENANCE THERAPY [None]
